FAERS Safety Report 25255730 (Version 1)
Quarter: 2025Q2

REPORT INFORMATION
  Report Type: Spontaneous
  Country: AU (occurrence: AU)
  Receive Date: 20250430
  Receipt Date: 20250430
  Transmission Date: 20250717
  Serious: Yes (Hospitalization)
  Sender: LEGACY PHARMACEUTICAL PACKAGING
  Company Number: AU-LEGACY PHARMA INC. SEZC-LGP202504-000134

PATIENT
  Age: 47 Year
  Sex: Male

DRUGS (7)
  1. AZATHIOPRINE [Suspect]
     Active Substance: AZATHIOPRINE
     Indication: Glomerulonephritis
     Dosage: 100 MILLIGRAM, DAILY
     Route: 065
  2. AZATHIOPRINE [Suspect]
     Active Substance: AZATHIOPRINE
     Route: 065
     Dates: start: 19690403
  3. HEPARIN [Concomitant]
     Active Substance: HEPARIN SODIUM
     Indication: Glomerulonephritis
     Route: 042
  4. DIPYRIDAMOLE [Concomitant]
     Active Substance: DIPYRIDAMOLE
     Indication: Glomerulonephritis
     Dosage: 400 MILLIGRAM, DAILY
     Route: 048
  5. PHENINDIONE [Concomitant]
     Active Substance: PHENINDIONE
     Indication: Glomerulonephritis
     Dosage: 100 MILLIGRAM, DAILY
  6. PREDNISOLONE [Concomitant]
     Active Substance: PREDNISOLONE
     Indication: Product used for unknown indication
     Dosage: 10 MILLIGRAM, DAILY
  7. PREDNISOLONE [Concomitant]
     Active Substance: PREDNISOLONE
     Dosage: 30 MILLIGRAM, DAILY

REACTIONS (11)
  - Haematuria [Unknown]
  - Chills [Unknown]
  - Decreased appetite [Unknown]
  - Urine output decreased [Not Recovered/Not Resolved]
  - Arthralgia [Unknown]
  - Vomiting [Unknown]
  - Diarrhoea [Unknown]
  - Pyrexia [Unknown]
  - Rash erythematous [Unknown]
  - Nausea [Unknown]
  - Product use in unapproved indication [Unknown]

NARRATIVE: CASE EVENT DATE: 19690403
